FAERS Safety Report 7386643-4 (Version None)
Quarter: 2011Q1

REPORT INFORMATION
  Report Type: 
  Country: None (occurrence: None)
  Receive Date: 20110331
  Receipt Date: 20110329
  Transmission Date: 20110831
  Serious: Yes (Other)
  Sender: FDA-Public Use
  Company Number: US-AMGEN GMBH-QUU442729

PATIENT
  Age: 53 Year
  Sex: Female

DRUGS (5)
  1. NPLATE [Suspect]
     Dosage: 1560 A?G/KG, UNK
     Dates: start: 20100112, end: 20100909
  2. RITUXIMAB [Concomitant]
     Dosage: UNK UNK, UNK
     Dates: start: 20100921
  3. NPLATE [Suspect]
     Dates: start: 20100108, end: 20100909
  4. NPLATE [Suspect]
     Indication: IDIOPATHIC THROMBOCYTOPENIC PURPURA
     Dosage: 1560 A?G, UNK
     Dates: start: 20100108, end: 20100909
  5. NPLATE [Suspect]
     Dosage: 1560 A?G, UNK
     Route: 058
     Dates: start: 20100112, end: 20100909

REACTIONS (3)
  - HEPATITIS C VIRUS TEST POSITIVE [None]
  - THERAPEUTIC RESPONSE DECREASED [None]
  - PLATELET COUNT DECREASED [None]
